FAERS Safety Report 19767923 (Version 1)
Quarter: 2021Q3

REPORT INFORMATION
  Report Type: Spontaneous
  Country: US (occurrence: US)
  Receive Date: 20210831
  Receipt Date: 20210831
  Transmission Date: 20211014
  Serious: Yes (Other)
  Sender: FDA-Public Use
  Company Number: None

PATIENT
  Age: 26 Year
  Sex: Female

DRUGS (1)
  1. REGEN?COV [Suspect]
     Active Substance: CASIRIVIMAB\IMDEVIMAB
     Indication: COVID-19
     Route: 042
     Dates: start: 20210824

REACTIONS (6)
  - Hypotension [None]
  - Presyncope [None]
  - Heart rate decreased [None]
  - Nausea [None]
  - Pallor [None]
  - Vomiting [None]

NARRATIVE: CASE EVENT DATE: 20210824
